FAERS Safety Report 8391441-9 (Version None)
Quarter: 2012Q2

REPORT INFORMATION
  Report Type: 
  Country: None (occurrence: None)
  Receive Date: 20120529
  Receipt Date: 20120524
  Transmission Date: 20120825
  Serious: Yes (Other)
  Sender: FDA-Public Use
  Company Number: US-SANOFI-AVENTIS-2012SA037369

PATIENT
  Age: 58 Year
  Sex: Male

DRUGS (6)
  1. ALDESLEUKIN [Concomitant]
     Dosage: TOTAL 11 DOSES WERE ADMINISTRATED
     Route: 042
  2. ONDANSETRON [Concomitant]
     Indication: PROPHYLAXIS OF NAUSEA AND VOMITING
     Route: 042
  3. DEMEROL [Suspect]
     Dosage: TOTAL 4 DOSES GIVEN (EVERY FOUR HOURS , AS NEEDED)
     Route: 042
  4. PHENERGAN [Concomitant]
     Indication: NAUSEA
     Route: 042
  5. DEMEROL [Suspect]
     Dosage: TOTAL 8 DOSES GIVEN
     Route: 065
  6. DOPAMINE HCL [Concomitant]
     Dosage: PER HOUR

REACTIONS (3)
  - NEUROTOXICITY [None]
  - CONFUSIONAL STATE [None]
  - SEDATION [None]
